FAERS Safety Report 21036510 (Version 1)
Quarter: 2022Q3

REPORT INFORMATION
  Report Type: Spontaneous
  Country: IN (occurrence: IN)
  Receive Date: 20220702
  Receipt Date: 20220702
  Transmission Date: 20221026
  Serious: Yes (Other)
  Sender: FDA-Public Use
  Company Number: IN-Shilpa Medicare Limited-SML-IN-2022-00715

PATIENT
  Age: 40 Year
  Sex: Female

DRUGS (1)
  1. IMATINIB [Suspect]
     Active Substance: IMATINIB
     Indication: Chronic myeloid leukaemia (in remission)
     Route: 065

REACTIONS (4)
  - Melanocytic naevus [Unknown]
  - Ota^s naevus [Unknown]
  - Skin hypopigmentation [Unknown]
  - Hypertrichosis [Unknown]
